FAERS Safety Report 19170771 (Version 1)
Quarter: 2021Q2

REPORT INFORMATION
  Report Type: Spontaneous
  Country: US (occurrence: US)
  Receive Date: 20210422
  Receipt Date: 20210422
  Transmission Date: 20210717
  Serious: Yes (Hospitalization)
  Sender: FDA-Public Use
  Company Number: US-US-PROVELL PHARMACEUTICALS LLC-9233406

PATIENT

DRUGS (2)
  1. EUTHYROX [Suspect]
     Active Substance: LEVOTHYROXINE SODIUM
     Indication: THYROID DISORDER
     Dates: start: 2020
  2. EUTHYROX [Suspect]
     Active Substance: LEVOTHYROXINE SODIUM
     Dosage: DOSE INCREASE (UNSPECIFIED DOSE)
     Dates: end: 202104

REACTIONS (10)
  - Feeling abnormal [Unknown]
  - Dizziness [Unknown]
  - Alopecia [Unknown]
  - Lethargy [Unknown]
  - Body temperature fluctuation [Unknown]
  - Gastric disorder [Unknown]
  - Chest discomfort [Unknown]
  - Headache [Unknown]
  - Therapeutic response decreased [Unknown]
  - Cardiac disorder [Unknown]
